FAERS Safety Report 16298166 (Version 1)
Quarter: 2019Q2

REPORT INFORMATION
  Report Type: Spontaneous
  Country: US (occurrence: US)
  Receive Date: 20190405
  Receipt Date: 20190405
  Transmission Date: 20190711
  Serious: Yes (Other)
  Sender: FDA-Public Use
  Company Number: None

PATIENT
  Age: 13 Year
  Sex: Female
  Weight: 44 kg

DRUGS (2)
  1. IRESSA [Suspect]
     Active Substance: GEFITINIB
     Indication: RESPIRATORY PAPILLOMA
     Route: 048
     Dates: start: 201302, end: 20190403
  2. IRESSA [Suspect]
     Active Substance: GEFITINIB
     Indication: RESPIRATORY PAPILLOMA
     Dates: start: 20150409, end: 20181221

REACTIONS (1)
  - Squamous cell carcinoma of lung [None]

NARRATIVE: CASE EVENT DATE: 20190328
